FAERS Safety Report 7920757-2 (Version None)
Quarter: 2011Q4

REPORT INFORMATION
  Report Type: 
  Country: None (occurrence: None)
  Receive Date: 20111117
  Receipt Date: 20111114
  Transmission Date: 20120403
  Serious: Yes (Other)
  Sender: FDA-Public Use
  Company Number: US-PFIZER INC-2011264661

PATIENT
  Sex: Female
  Weight: 83.9 kg

DRUGS (9)
  1. GLIPIZIDE [Suspect]
     Dosage: UNK
     Route: 048
     Dates: start: 20090101, end: 20111001
  2. METFORMIN [Concomitant]
     Dosage: UNK
  3. SIMVASTATIN [Concomitant]
     Dosage: 20 MG, 1X/DAY
  4. PLAVIX [Concomitant]
     Dosage: 75 MG, 1X/DAY
  5. LASIX [Concomitant]
     Dosage: 40 MG, 2X/DAY
  6. GLIPIZIDE [Suspect]
     Indication: DIABETES MELLITUS
     Dosage: 2.5 MG, 2X/DAY
     Route: 048
     Dates: start: 20081201, end: 20090101
  7. ENALAPRIL [Concomitant]
     Dosage: 2.5 MG, 2X/DAY
  8. CARVEDILOL [Concomitant]
     Dosage: 6.25 MG, 2X/DAY
  9. ASPIRIN [Concomitant]
     Dosage: UNK

REACTIONS (3)
  - OPEN WOUND [None]
  - BLOOD GLUCOSE ABNORMAL [None]
  - WOUND COMPLICATION [None]
